FAERS Safety Report 15333944 (Version 1)
Quarter: 2018Q3

REPORT INFORMATION
  Report Type: Spontaneous
  Country: US (occurrence: US)
  Receive Date: 20180830
  Receipt Date: 20180830
  Transmission Date: 20181010
  Serious: Yes (Hospitalization)
  Sender: FDA-Public Use
  Company Number: US-CELGENEUS-USA-20180807490

PATIENT
  Sex: Female
  Weight: 97.52 kg

DRUGS (1)
  1. OTEZLA [Suspect]
     Active Substance: APREMILAST
     Indication: PSORIASIS
     Dosage: 60 MILLIGRAM
     Route: 048
     Dates: start: 20180725

REACTIONS (3)
  - Swelling [Unknown]
  - Device occlusion [Unknown]
  - Pain [Unknown]

NARRATIVE: CASE EVENT DATE: 2018
